FAERS Safety Report 20068311 (Version 1)
Quarter: 2021Q4

REPORT INFORMATION
  Report Type: Spontaneous
  Country: US (occurrence: None)
  Receive Date: 20211115
  Receipt Date: 20211115
  Transmission Date: 20220303
  Serious: No
  Sender: FDA-Public Use
  Company Number: US-Covis Pharma GmbH-2021COV24283

PATIENT
  Sex: Male

DRUGS (1)
  1. BETAPACE AF [Suspect]
     Active Substance: SOTALOL HYDROCHLORIDE
     Indication: Arrhythmia
     Dosage: GENERIC SOTALOL (MANUFACTURER UNKNOWN)
     Route: 048

REACTIONS (2)
  - Heart rate irregular [Recovered/Resolved]
  - Nervousness [Recovered/Resolved]
